FAERS Safety Report 10192336 (Version 2)
Quarter: 2014Q3

REPORT INFORMATION
  Report Type: Report from Study
  Country: BR (occurrence: BR)
  Receive Date: 20140523
  Receipt Date: 20140915
  Transmission Date: 20150326
  Serious: Yes (Other)
  Sender: FDA-Public Use
  Company Number: PHHY2014BR063064

PATIENT
  Sex: Female
  Weight: 60 kg

DRUGS (8)
  1. SPIRONOLACTONE. [Suspect]
     Active Substance: SPIRONOLACTONE
  2. CARVEDILOL. [Concomitant]
     Active Substance: CARVEDILOL
     Indication: HYPERTENSION
     Dosage: 6.25 MG, UNK
  3. NOVAIN [Concomitant]
     Indication: HYPERTENSION
     Dosage: 1 DF (2.5 MG) DAILY
  4. ATENSINA [Concomitant]
     Active Substance: CLONIDINE
     Indication: HYPERTENSION
     Dosage: 0.1 MG, UNK
  5. PAROXETINE [Concomitant]
     Active Substance: PAROXETINE\PAROXETINE HYDROCHLORIDE
     Indication: DEPRESSION
     Dosage: 1 DF (20 MG) DAILY (AFTER THE STROKE)
  6. BROMAZEPAM [Concomitant]
     Active Substance: BROMAZEPAM
     Indication: ANXIOLYTIC THERAPY
     Dosage: 1 DF (3 MG), UNK (AFTER THE STROKE)
     Dates: start: 1998
  7. MONOCORDIL [Concomitant]
     Active Substance: ISOSORBIDE MONONITRATE
     Indication: HYPERTENSION
     Dosage: 1 DF (50 MG) DAILY
  8. DIOVAN [Suspect]
     Active Substance: VALSARTAN
     Indication: HYPERTENSION
     Dosage: 2 DF (160 MG), DAILY
     Route: 048
     Dates: start: 1998

REACTIONS (5)
  - Urinary tract infection [Recovering/Resolving]
  - Cerebrovascular accident [Recovering/Resolving]
  - Dizziness [Recovering/Resolving]
  - Carotid artery occlusion [Unknown]
  - Abasia [Recovering/Resolving]

NARRATIVE: CASE EVENT DATE: 1998
